FAERS Safety Report 23125383 (Version 2)
Quarter: 2023Q4

REPORT INFORMATION
  Report Type: Report from Study
  Country: BR (occurrence: BR)
  Receive Date: 20231030
  Receipt Date: 20231207
  Transmission Date: 20240109
  Serious: Yes (Other)
  Sender: FDA-Public Use
  Company Number: BR-BRISTOL-MYERS SQUIBB COMPANY-2023-151043

PATIENT
  Age: 72 Year
  Sex: Female

DRUGS (2)
  1. CAMZYOS [Suspect]
     Active Substance: MAVACAMTEN
     Indication: Hypertrophic cardiomyopathy
     Route: 048
     Dates: start: 20230928
  2. CAMZYOS [Suspect]
     Active Substance: MAVACAMTEN
     Route: 048
     Dates: start: 20231025

REACTIONS (4)
  - Pericardial effusion [Not Recovered/Not Resolved]
  - Pain in extremity [Unknown]
  - Iliotibial band syndrome [Unknown]
  - Enthesopathy [Unknown]

NARRATIVE: CASE EVENT DATE: 20231017
